FAERS Safety Report 17649030 (Version 1)
Quarter: 2020Q2

REPORT INFORMATION
  Report Type: Spontaneous
  Country: US (occurrence: US)
  Receive Date: 20200409
  Receipt Date: 20200409
  Transmission Date: 20200713
  Serious: No
  Sender: FDA-Public Use
  Company Number: US-JNJFOC-20200328623

PATIENT
  Age: 53 Year
  Sex: Female
  Weight: 102.15 kg

DRUGS (4)
  1. CHILDRENS ZYRTEC ALLERGY [Suspect]
     Active Substance: CETIRIZINE HYDROCHLORIDE
     Indication: ADVERSE DRUG REACTION
     Dosage: ONE 10 MG TAB 1X PER DAY?LAST DRUG ADMINISTRATION DATE: 18/MAR/2020
     Route: 048
     Dates: start: 20200316
  2. CHILDRENS BENADRYL ALLERGY [Concomitant]
     Active Substance: DIPHENHYDRAMINE HYDROCHLORIDE
     Indication: ADVERSE DRUG REACTION
     Dosage: ONE 12.5 MG TABLET, ONCE
     Route: 048
     Dates: start: 20200315
  3. CHILDRENS BENADRYL DYE-FREE ALLERGY [Concomitant]
     Active Substance: DIPHENHYDRAMINE HYDROCHLORIDE
     Indication: ADVERSE DRUG REACTION
     Dosage: 5 ML 1X EVERY OTHER DAY?LAST DATE 18-MAR-2020
     Route: 048
     Dates: start: 20200316
  4. TYLENOL [Concomitant]
     Active Substance: ACETAMINOPHEN
     Indication: EAR PAIN
     Dosage: 1 PILL (500 MG) 2X PER DAY
     Route: 048
     Dates: start: 20200314, end: 20200315

REACTIONS (1)
  - Product use in unapproved indication [Unknown]

NARRATIVE: CASE EVENT DATE: 20200316
